FAERS Safety Report 4700985-X (Version None)
Quarter: 2005Q2

REPORT INFORMATION
  Report Type: 
  Country: None (occurrence: None)
  Receive Date: 20050624
  Receipt Date: 20050610
  Transmission Date: 20051028
  Serious: Yes (Death, Other)
  Sender: FDA-Public Use
  Company Number: US138513

PATIENT
  Sex: Female

DRUGS (1)
  1. ENBREL [Suspect]
     Indication: HEPATITIS ALCOHOLIC
     Dosage: 32 MG/M2, IV
     Route: 042

REACTIONS (3)
  - DISEASE RECURRENCE [None]
  - HEPATITIS ALCOHOLIC [None]
  - TREATMENT NONCOMPLIANCE [None]
